FAERS Safety Report 5818100-8 (Version None)
Quarter: 2008Q3

REPORT INFORMATION
  Report Type: 
  Country: None (occurrence: None)
  Receive Date: 20080722
  Receipt Date: 20070926
  Transmission Date: 20090109
  Serious: No
  Sender: FDA-Public Use
  Company Number: US-BAYER-US-2007-036430

PATIENT
  Age: 58 Year
  Sex: Female
  Weight: 66 kg

DRUGS (1)
  1. MAGNEVIST [Suspect]
     Indication: NUCLEAR MAGNETIC RESONANCE IMAGING BRAIN
     Dosage: UNIT DOSE: 20 ML
     Route: 042
     Dates: start: 20070920, end: 20070920

REACTIONS (4)
  - NASAL CONGESTION [None]
  - PRURITUS [None]
  - SNEEZING [None]
  - THROAT IRRITATION [None]
